FAERS Safety Report 18414259 (Version 1)
Quarter: 2020Q4

REPORT INFORMATION
  Report Type: Spontaneous
  Country: DE (occurrence: DE)
  Receive Date: 20201022
  Receipt Date: 20201022
  Transmission Date: 20210114
  Serious: Yes (Other)
  Sender: FDA-Public Use
  Company Number: DE-009507513-2010DEU007796

PATIENT
  Age: 27 Year
  Sex: Male
  Weight: 92 kg

DRUGS (1)
  1. DELSTRIGO [Suspect]
     Active Substance: DORAVIRINE\LAMIVUDINE\TENOFOVIR DISOPROXIL FUMARATE
     Indication: HIV INFECTION
     Dosage: UNK

REACTIONS (4)
  - Dry mouth [Unknown]
  - Heart rate increased [Recovering/Resolving]
  - Hypothyroidism [Not Recovered/Not Resolved]
  - Blood pressure increased [Recovering/Resolving]
